FAERS Safety Report 7020462-3 (Version None)
Quarter: 2010Q3

REPORT INFORMATION
  Report Type: 
  Country: None (occurrence: None)
  Receive Date: 20100929
  Receipt Date: 20100921
  Transmission Date: 20110219
  Serious: Yes (Death)
  Sender: FDA-Public Use
  Company Number: US-ROCHE-723491

PATIENT
  Sex: Female
  Weight: 68 kg

DRUGS (5)
  1. XELODA [Suspect]
     Indication: PRODUCT USED FOR UNKNOWN INDICATION
     Route: 065
     Dates: end: 20100306
  2. HYDROCODONE BITARTRATE + ACETAMINOPHEN [Concomitant]
     Indication: PAIN
     Dosage: DOSE: 5/500, FREQ: EVERY 3 HOUR PRN. DRUG NAME: HYDROCODONE/APAP
     Route: 048
     Dates: start: 20081008
  3. ONDANSETRON [Concomitant]
     Indication: NAUSEA
     Dosage: FREQUENCY: EVERY 8 HOUR AS NEEDED
     Route: 048
     Dates: start: 20081008
  4. PROCHLORPERAZINE [Concomitant]
     Indication: NAUSEA
     Route: 048
     Dates: start: 20081021
  5. PANTOPRAZOLE [Concomitant]
     Route: 048
     Dates: start: 20091110

REACTIONS (3)
  - MALIGNANT NEOPLASM PROGRESSION [None]
  - NAUSEA [None]
  - PALMAR-PLANTAR ERYTHRODYSAESTHESIA SYNDROME [None]
